FAERS Safety Report 8621772-6 (Version None)
Quarter: 2012Q3

REPORT INFORMATION
  Report Type: 
  Country: None (occurrence: None)
  Receive Date: 20120821
  Receipt Date: 20120821
  Transmission Date: 20120928
  Serious: Yes (Death)
  Sender: FDA-Public Use
  Company Number: None

PATIENT
  Age: 77 Year
  Sex: Female
  Weight: 127.0072 kg

DRUGS (1)
  1. PRADAXA [Suspect]
     Indication: HEART RATE IRREGULAR
     Dosage: 75MG QD
     Dates: start: 20120403, end: 20120802

REACTIONS (3)
  - HAEMORRHAGE [None]
  - GASTROINTESTINAL DISORDER [None]
  - RENAL FAILURE [None]
